FAERS Safety Report 21575998 (Version 2)
Quarter: 2022Q4

REPORT INFORMATION
  Report Type: Report from Study
  Country: CA (occurrence: CA)
  Receive Date: 20221110
  Receipt Date: 20221129
  Transmission Date: 20230112
  Serious: Yes (Death)
  Sender: FDA-Public Use
  Company Number: CA-ABBVIE-4192607

PATIENT
  Age: 61 Year
  Sex: Male

DRUGS (23)
  1. RISANKIZUMAB [Suspect]
     Active Substance: RISANKIZUMAB
     Indication: Psoriasis
     Route: 058
     Dates: start: 20200528, end: 20220615
  2. RISANKIZUMAB [Suspect]
     Active Substance: RISANKIZUMAB
     Route: 058
     Dates: start: 20200429, end: 20200527
  3. ZOPICLONE [Concomitant]
     Active Substance: ZOPICLONE
     Indication: Insomnia
     Dosage: AT BEDTIME EVERY DAY
     Route: 048
     Dates: start: 20200416, end: 202007
  4. MELATONIN [Concomitant]
     Active Substance: MELATONIN
     Indication: Insomnia
     Dosage: AT BEDTIME EVERY DAY
     Route: 048
     Dates: start: 202007
  5. SPIRONOLACTONE [Concomitant]
     Active Substance: SPIRONOLACTONE
     Indication: Portal hypertension
     Route: 048
     Dates: start: 20220314
  6. SPIRONOLACTONE [Concomitant]
     Active Substance: SPIRONOLACTONE
     Indication: Portal hypertension
     Dosage: CUMULATIVE DOSE 79550 MG
     Route: 048
     Dates: start: 20191001, end: 20220313
  7. VANCOMYCIN [Concomitant]
     Active Substance: VANCOMYCIN
     Indication: Cellulitis
     Dosage: ONCE
     Route: 042
     Dates: start: 20211025, end: 20211026
  8. RIBAVIRIN [Concomitant]
     Active Substance: RIBAVIRIN
     Indication: Hepatic cirrhosis
     Route: 048
     Dates: start: 20200410, end: 202007
  9. CEFTRIAXONE [Concomitant]
     Active Substance: CEFTRIAXONE
     Indication: Cellulitis
     Dosage: ONCE
     Route: 042
     Dates: start: 20211025, end: 20211025
  10. QUETIAPINE [Concomitant]
     Active Substance: QUETIAPINE
     Indication: Insomnia
     Dosage: AT BEDTIME EVERY DAY
     Route: 048
     Dates: start: 20220314
  11. QUETIAPINE [Concomitant]
     Active Substance: QUETIAPINE
     Indication: Insomnia
     Dosage: AT BEDTIME EVERY DAY
     Route: 048
     Dates: start: 202007, end: 20220313
  12. AMOXICILLIN\CLAVULANATE POTASSIUM [Concomitant]
     Active Substance: AMOXICILLIN\CLAVULANATE POTASSIUM
     Indication: Cellulitis
     Route: 048
     Dates: start: 20211028, end: 20211105
  13. VALIUM [Concomitant]
     Active Substance: DIAZEPAM
     Indication: Failure to thrive
     Dosage: EVERY 2 HOURS / AS NEEDED
     Route: 048
     Dates: end: 20211105
  14. HYDROMORPHONE [Concomitant]
     Active Substance: HYDROMORPHONE
     Indication: Cellulitis
     Dosage: 0.5-1.0 MG EVERY 6 HOURS/ AS NEEDED
     Route: 042
     Dates: start: 20211026, end: 20211028
  15. CITALOPRAM [Concomitant]
     Active Substance: CITALOPRAM HYDROBROMIDE
     Indication: Depression
     Route: 048
     Dates: start: 202009
  16. APIXABAN [Concomitant]
     Active Substance: APIXABAN
     Indication: Thrombosis prophylaxis
     Route: 048
     Dates: start: 20220314
  17. SOFOSBUVIR [Concomitant]
     Active Substance: SOFOSBUVIR
     Indication: Hepatic cirrhosis
     Route: 048
     Dates: start: 20200410, end: 202007
  18. TYLENOL [Concomitant]
     Active Substance: ACETAMINOPHEN
     Indication: Failure to thrive
     Dosage: 1- 2 TABLETS,EVERY 4 HOURS/ AS NEEDED
     Route: 048
     Dates: end: 20211105
  19. TYLENOL [Concomitant]
     Active Substance: ACETAMINOPHEN
     Indication: Failure to thrive
     Dosage: 1-2 TABLET EVERY 6 HOURS / AS NEEDED
     Route: 048
     Dates: start: 20211025, end: 20211028
  20. DALTEPARIN [Concomitant]
     Active Substance: DALTEPARIN
     Indication: Cellulitis
     Dosage: 20000 DOSAGE FORM
     Route: 042
     Dates: start: 20211025, end: 20211028
  21. FUROSEMIDE [Concomitant]
     Active Substance: FUROSEMIDE
     Indication: Portal hypertension
     Dosage: CUMULATIVE DOSE 85520 MG
     Route: 048
     Dates: start: 20191001, end: 20220313
  22. FUROSEMIDE [Concomitant]
     Active Substance: FUROSEMIDE
     Indication: Portal hypertension
     Route: 048
     Dates: start: 20220314
  23. ROSUVASTATIN [Concomitant]
     Active Substance: ROSUVASTATIN
     Indication: Dyslipidaemia
     Dosage: CUMULATIVE DOSE 1740 MG
     Route: 048
     Dates: start: 20220314

REACTIONS (4)
  - Multiple organ dysfunction syndrome [Fatal]
  - Right ventricular dysfunction [Fatal]
  - Hepatic cirrhosis [Fatal]
  - Death [Fatal]

NARRATIVE: CASE EVENT DATE: 20220608
